FAERS Safety Report 11784730 (Version 3)
Quarter: 2016Q3

REPORT INFORMATION
  Report Type: Spontaneous
  Country: IT (occurrence: IT)
  Receive Date: 20151130
  Receipt Date: 20160818
  Transmission Date: 20161109
  Serious: Yes (Death)
  Sender: FDA-Public Use
  Company Number: IT-ROCHE-1669321

PATIENT
  Age: 75 Year
  Sex: Male
  Weight: 64 kg

DRUGS (2)
  1. AVASTIN [Suspect]
     Active Substance: BEVACIZUMAB
     Indication: ADENOCARCINOMA OF COLON
     Route: 041
     Dates: start: 20151112, end: 20151112
  2. XELODA [Concomitant]
     Active Substance: CAPECITABINE
     Indication: ADENOCARCINOMA OF COLON
     Dosage: 500 MG 120 FILM-COATED TABLETS IN A BLISTER PACK FOR ORAL USE
     Route: 048
     Dates: start: 20151113, end: 20151123

REACTIONS (1)
  - Terminal state [Fatal]

NARRATIVE: CASE EVENT DATE: 20151124
